FAERS Safety Report 8186994-X (Version None)
Quarter: 2012Q1

REPORT INFORMATION
  Report Type: 
  Country: None (occurrence: None)
  Receive Date: 20120302
  Receipt Date: 20120222
  Transmission Date: 20120608
  Serious: Yes (Other)
  Sender: FDA-Public Use
  Company Number: AUR-APL-2012-01146

PATIENT
  Age: 50 Year
  Sex: Female
  Weight: 65 kg

DRUGS (25)
  1. CHANTIX [Suspect]
     Indication: SMOKING CESSATION THERAPY
     Dosage: (0.5 MG,1 D),ORAL
     Route: 048
     Dates: start: 20120201
  2. ESTRADIOL [Suspect]
     Indication: PRODUCT USED FOR UNKNOWN INDICATION
     Dosage: (0.5 MG)
  3. INDERAL [Suspect]
     Indication: PRODUCT USED FOR UNKNOWN INDICATION
  4. NIASPAN [Suspect]
     Indication: BLOOD CHOLESTEROL INCREASED
     Dosage: (500 MG,1 D)
  5. DEPAKOTE [Suspect]
     Indication: PRODUCT USED FOR UNKNOWN INDICATION
  6. GEODON [Suspect]
     Indication: PRODUCT USED FOR UNKNOWN INDICATION
  7. NORVASC [Suspect]
     Indication: PRODUCT USED FOR UNKNOWN INDICATION
     Dosage: (10 MG)
  8. ASPIRIN [Suspect]
     Indication: PRODUCT USED FOR UNKNOWN INDICATION
     Dosage: (81 MG,1 D)
  9. SPIRIVA [Suspect]
     Indication: BRONCHITIS
     Dosage: INHALATION
     Route: 055
  10. SPIRIVA [Suspect]
     Indication: ASTHMA
     Dosage: INHALATION
     Route: 055
  11. SPIRIVA [Suspect]
     Indication: EMPHYSEMA
     Dosage: INHALATION
     Route: 055
  12. MEDROXYPROGESTERONE [Suspect]
     Indication: PRODUCT USED FOR UNKNOWN INDICATION
     Dosage: (2.5 MG)
  13. SEROQUEL [Suspect]
     Indication: POSTPARTUM DISORDER
     Dosage: (100 MG,1 D)
     Dates: start: 20060101
  14. SYMBICORT [Suspect]
     Indication: BRONCHITIS
  15. SYMBICORT [Suspect]
     Indication: ASTHMA
  16. SYMBICORT [Suspect]
     Indication: EMPHYSEMA
  17. TRAZODONE HCL [Suspect]
     Indication: PRODUCT USED FOR UNKNOWN INDICATION
  18. ADVAIR DISKUS 100/50 [Suspect]
     Indication: BRONCHITIS
  19. ADVAIR DISKUS 100/50 [Suspect]
     Indication: EMPHYSEMA
  20. ADVAIR DISKUS 100/50 [Suspect]
     Indication: ASTHMA
  21. LISINOPRIL [Suspect]
     Indication: HYPERTENSION
     Dosage: (40 MGK,1 D)
  22. COREG [Suspect]
     Indication: PRODUCT USED FOR UNKNOWN INDICATION
     Dosage: 25 MG (12.5 MG,2 IN 1 D)
  23. COMBIVENT [Suspect]
     Indication: BRONCHITIS
  24. COMBIVENT [Suspect]
     Indication: ASTHMA
  25. COMBIVENT [Suspect]
     Indication: EMPHYSEMA

REACTIONS (10)
  - IRRITABILITY [None]
  - NERVOUSNESS [None]
  - MIGRAINE [None]
  - DISORIENTATION [None]
  - MEMORY IMPAIRMENT [None]
  - SOMNOLENCE [None]
  - STRESS [None]
  - GASTRIC DISORDER [None]
  - AGITATION [None]
  - TREMOR [None]
